FAERS Safety Report 7792312-9 (Version None)
Quarter: 2011Q4

REPORT INFORMATION
  Report Type: 
  Country: None (occurrence: None)
  Receive Date: 20111003
  Receipt Date: 20110921
  Transmission Date: 20120403
  Serious: Yes (Other)
  Sender: FDA-Public Use
  Company Number: GB-ALLERGAN-1112847US

PATIENT
  Age: 56 Year
  Sex: Male

DRUGS (3)
  1. ARTIFICIAL TEARS [Concomitant]
     Dosage: UNK
  2. FLUOROQUINOLONES [Concomitant]
     Indication: POSTOPERATIVE CARE
     Dosage: 1 DF, QID
  3. PREDNISOLONE [Suspect]
     Indication: POSTOPERATIVE CARE
     Dosage: 1 DF, QID
     Route: 047

REACTIONS (4)
  - CORNEAL DISORDER [None]
  - EYE OPERATION COMPLICATION [None]
  - CORNEAL INFILTRATES [None]
  - KERATITIS [None]
